FAERS Safety Report 8517852-6 (Version None)
Quarter: 2012Q3

REPORT INFORMATION
  Report Type: 
  Country: None (occurrence: None)
  Receive Date: 20120718
  Receipt Date: 20110729
  Transmission Date: 20120928
  Serious: Yes (Other)
  Sender: FDA-Public Use
  Company Number: US-BRISTOL-MYERS SQUIBB COMPANY-15844186

PATIENT
  Age: 82 Year
  Sex: Male
  Weight: 56 kg

DRUGS (9)
  1. TOPROL-XL [Concomitant]
  2. GLYBURIDE [Concomitant]
  3. ZETIA [Concomitant]
  4. CALCIUM [Concomitant]
  5. COUMADIN [Suspect]
     Indication: ATRIAL FIBRILLATION
     Dosage: DOSE REDUCED ON 20JUN2011.
     Route: 048
     Dates: start: 20070101
  6. METFORMIN HYDROCHLORIDE [Concomitant]
     Indication: DIABETES MELLITUS
  7. MULTI-VITAMIN [Concomitant]
  8. MAGNESIUM SULFATE [Concomitant]
  9. NORVASC [Concomitant]

REACTIONS (1)
  - EPISTAXIS [None]
